FAERS Safety Report 7509982-2 (Version None)
Quarter: 2011Q2

REPORT INFORMATION
  Report Type: 
  Country: None (occurrence: None)
  Receive Date: 20110527
  Receipt Date: 20110131
  Transmission Date: 20111010
  Serious: Yes (Hospitalization, Other)
  Sender: FDA-Public Use
  Company Number: US-BAYER-201036437NA

PATIENT
  Age: 20 Year
  Sex: Female
  Weight: 71.202 kg

DRUGS (8)
  1. WELLBUTRIN [Concomitant]
     Dosage: 150 MG, QD
     Route: 048
  2. IBUPROFEN [Concomitant]
  3. YASMIN [Suspect]
     Indication: MENSTRUATION IRREGULAR
  4. ROGAINE [Concomitant]
  5. CLARITIN [Concomitant]
  6. YASMIN [Suspect]
     Indication: ORAL CONTRACEPTION
     Route: 048
     Dates: start: 20020101, end: 20060525
  7. ADVIL LIQUI-GELS [Concomitant]
     Indication: HEADACHE
     Route: 048
  8. ZOLOFT [Concomitant]
     Indication: OBSESSIVE-COMPULSIVE DISORDER
     Dosage: 25 MG, QD
     Route: 048

REACTIONS (3)
  - TRAUMATIC LUNG INJURY [None]
  - PULMONARY EMBOLISM [None]
  - MENTAL DISORDER [None]
